FAERS Safety Report 16544140 (Version 1)
Quarter: 2019Q3

REPORT INFORMATION
  Report Type: Report from Study
  Country: None (occurrence: CA)
  Receive Date: 20190709
  Receipt Date: 20190709
  Transmission Date: 20191004
  Serious: Yes (Other)
  Sender: FDA-Public Use
  Company Number: CA-ABBVIE-19K-028-2843828-00

PATIENT
  Sex: Male

DRUGS (1)
  1. HUMIRA [Suspect]
     Active Substance: ADALIMUMAB
     Indication: COLITIS ULCERATIVE
     Route: 058
     Dates: start: 20181221

REACTIONS (7)
  - Productive cough [Not Recovered/Not Resolved]
  - Defaecation urgency [Unknown]
  - Nasopharyngitis [Not Recovered/Not Resolved]
  - Anal incontinence [Unknown]
  - Abscess [Unknown]
  - Wisdom teeth removal [Unknown]
  - Cerebral disorder [Unknown]

NARRATIVE: CASE EVENT DATE: 2019
